FAERS Safety Report 7469498-9 (Version None)
Quarter: 2011Q2

REPORT INFORMATION
  Report Type: 
  Country: None (occurrence: None)
  Receive Date: 20110510
  Receipt Date: 20110427
  Transmission Date: 20111010
  Serious: Yes (Hospitalization, Other)
  Sender: FDA-Public Use
  Company Number: PHHY2011NL35915

PATIENT
  Sex: Female

DRUGS (3)
  1. SANDOSTATIN LAR [Suspect]
     Dosage: 20 MG, UNK
  2. SANDOSTATIN LAR [Suspect]
     Dosage: 30 MG, UNK
  3. SANDOSTATIN LAR [Suspect]
     Indication: NEUROENDOCRINE TUMOUR
     Dosage: 20 MG, UNK

REACTIONS (7)
  - PNEUMONIA [None]
  - WEIGHT DECREASED [None]
  - METASTASES TO LIVER [None]
  - METASTASES TO LUNG [None]
  - DIARRHOEA [None]
  - FLUSHING [None]
  - ABDOMINAL PAIN UPPER [None]
